FAERS Safety Report 8508997 (Version 2)
Quarter: 2012Q4

REPORT INFORMATION
  Report Type: 
  Country: US (occurrence: US)
  Receive Date: 20120412
  Receipt Date: 20121108
  Transmission Date: 20130627
  Serious: No
  Sender: FDA-Public Use
  Company Number: US-ASTRAZENECA-2011SE53694

PATIENT
  Age: 69 Year
  Sex: Female

DRUGS (5)
  1. NEXIUM [Suspect]
     Route: 048
  2. NEXIUM [Suspect]
     Route: 048
  3. NEXIUM [Suspect]
     Route: 048
  4. PRILOSEC [Suspect]
     Route: 048
  5. PRILOSEC [Suspect]
     Dosage: GENERIC OMEPRAZOLE
     Route: 048

REACTIONS (7)
  - Arthritis [Unknown]
  - Bronchitis [Unknown]
  - Gastrooesophageal reflux disease [Unknown]
  - Chronic obstructive pulmonary disease [Unknown]
  - Musculoskeletal disorder [Unknown]
  - Malaise [Unknown]
  - Intentional drug misuse [Unknown]
